FAERS Safety Report 7068434-7 (Version None)
Quarter: 2010Q4

REPORT INFORMATION
  Report Type: 
  Country: None (occurrence: None)
  Receive Date: 20101028
  Receipt Date: 20101018
  Transmission Date: 20110411
  Serious: Yes (Other)
  Sender: FDA-Public Use
  Company Number: B0681402A

PATIENT
  Sex: Female

DRUGS (1)
  1. LAMICTAL [Suspect]
     Indication: PRODUCT USED FOR UNKNOWN INDICATION
     Dosage: 100MG PER DAY
     Route: 065

REACTIONS (8)
  - ACNE [None]
  - ALOPECIA [None]
  - DIARRHOEA [None]
  - GINGIVAL SWELLING [None]
  - PRURITUS [None]
  - RASH [None]
  - SYNCOPE [None]
  - UPPER AIRWAY OBSTRUCTION [None]
